FAERS Safety Report 5959988-X (Version None)
Quarter: 2008Q4

REPORT INFORMATION
  Report Type: 
  Country: None (occurrence: None)
  Receive Date: 20081119
  Receipt Date: 20081119
  Transmission Date: 20090506
  Serious: Yes (Hospitalization)
  Sender: FDA-Public Use
  Company Number: None

PATIENT
  Age: 44 Year
  Sex: Male
  Weight: 110.7 kg

DRUGS (10)
  1. ACETAMINOPHEN AND OXYCODONE HCL [Suspect]
     Indication: PAIN
  2. ZOLPIDEM [Concomitant]
  3. GLIPIZIDE [Concomitant]
  4. OLMESARTAN MEDOXOMIL [Concomitant]
  5. ESOMEPRAZOLE MAGNESIUM [Concomitant]
  6. SIMVASTATIN [Concomitant]
  7. PREDNISONE TAB [Concomitant]
  8. INFLIXIMAB [Concomitant]
  9. ALPRAZOLAM [Concomitant]
  10. NYQUIL [Concomitant]

REACTIONS (5)
  - BLOOD PRESSURE SYSTOLIC INCREASED [None]
  - DRUG SCREEN POSITIVE [None]
  - HEART RATE INCREASED [None]
  - SOMNOLENCE [None]
  - UNRESPONSIVE TO STIMULI [None]
